FAERS Safety Report 11416193 (Version 1)
Quarter: 2015Q3

REPORT INFORMATION
  Report Type: Spontaneous
  Country: US (occurrence: US)
  Receive Date: 20150825
  Receipt Date: 20150825
  Transmission Date: 20151125
  Serious: No
  Sender: FDA-Public Use
  Company Number: US-TEVA-565107USA

PATIENT
  Age: 82 Year
  Sex: Female
  Weight: 76.19 kg

DRUGS (4)
  1. ATENOLOL. [Concomitant]
     Active Substance: ATENOLOL
     Dates: start: 201504
  2. AMLODIPINE [Concomitant]
     Active Substance: AMLODIPINE BESYLATE
     Dates: start: 2013
  3. SULFASALAZINE. [Concomitant]
     Active Substance: SULFASALAZINE
     Dates: start: 20150501
  4. FEXOFENADINE [Suspect]
     Active Substance: FEXOFENADINE\FEXOFENADINE HYDROCHLORIDE
     Indication: COUGH
     Dosage: 180 MILLIGRAM DAILY;
     Route: 048
     Dates: start: 20150511, end: 20150515

REACTIONS (6)
  - Peripheral swelling [Recovered/Resolved]
  - Product use issue [Unknown]
  - Off label use [Unknown]
  - Muscular weakness [Recovered/Resolved]
  - Ageusia [Recovered/Resolved]
  - Drug administered to patient of inappropriate age [Unknown]

NARRATIVE: CASE EVENT DATE: 20150513
